FAERS Safety Report 8926047 (Version 10)
Quarter: 2013Q1

REPORT INFORMATION
  Report Type: Spontaneous
  Country: JP (occurrence: JP)
  Receive Date: 20121126
  Receipt Date: 20130318
  Transmission Date: 20140127
  Serious: Yes (Other)
  Sender: FDA-Public Use
  Company Number: JP-JNJFOC-20121103146

PATIENT
  Age: 40 Year
  Sex: Male
  Weight: 83 kg

DRUGS (7)
  1. DUROTEP MT [Suspect]
     Indication: PAIN
     Dosage: 2 PATCHES OF 12.5 UG/HR
     Route: 062
     Dates: start: 20121120
  2. DUROTEP MT [Suspect]
     Indication: PAIN
     Route: 062
     Dates: start: 20121114, end: 20121119
  3. DUROTEP MT [Suspect]
     Indication: PAIN
     Route: 062
     Dates: start: 20121105, end: 20121113
  4. DUROTEP MT [Suspect]
     Indication: PAIN
     Route: 062
     Dates: start: 20121015, end: 20121104
  5. TRAMCET [Suspect]
     Indication: PAIN
     Route: 048
     Dates: end: 20121011
  6. TRAMCET [Suspect]
     Indication: PAIN
     Route: 048
     Dates: start: 20121025
  7. EBRANTIL [Concomitant]
     Route: 048
     Dates: start: 20121104

REACTIONS (5)
  - Respiratory disorder [Recovered/Resolved]
  - Pollakiuria [Recovered/Resolved]
  - Dysuria [Recovered/Resolved]
  - Rash generalised [Recovered/Resolved]
  - Inadequate analgesia [Unknown]
